FAERS Safety Report 13538208 (Version 1)
Quarter: 2017Q2

REPORT INFORMATION
  Report Type: Spontaneous
  Country: US (occurrence: US)
  Receive Date: 20170512
  Receipt Date: 20170512
  Transmission Date: 20170830
  Serious: No
  Sender: FDA-Public Use
  Company Number: US-GLENMARK PHARMACEUTICALS-2016GMK022709

PATIENT

DRUGS (1)
  1. CALCIPOTREINE [Suspect]
     Active Substance: CALCIPOTRIENE
     Indication: PSORIASIS
     Dosage: UNK
     Route: 061

REACTIONS (4)
  - Skin burning sensation [Not Recovered/Not Resolved]
  - Application site dryness [Not Recovered/Not Resolved]
  - Psoriasis [Not Recovered/Not Resolved]
  - Application site pruritus [Not Recovered/Not Resolved]
